FAERS Safety Report 8735649 (Version 3)
Quarter: 2014Q1

REPORT INFORMATION
  Report Type: Spontaneous
  Country: FR (occurrence: FR)
  Receive Date: 20120822
  Receipt Date: 20140313
  Transmission Date: 20141002
  Serious: Yes (Other)
  Sender: FDA-Public Use
  Company Number: FR-JNJFOC-20120807687

PATIENT
  Age: 27 Year
  Sex: Female

DRUGS (6)
  1. REMICADE [Suspect]
     Indication: ANKYLOSING SPONDYLITIS
     Route: 042
     Dates: start: 20120625
  2. REMICADE [Suspect]
     Indication: ANKYLOSING SPONDYLITIS
     Route: 042
     Dates: start: 201103, end: 20111025
  3. REMICADE [Suspect]
     Indication: ANKYLOSING SPONDYLITIS
     Dosage: A TOTAL OF 10 INFUSIONS
     Route: 042
     Dates: start: 20120717, end: 20120717
  4. REMICADE [Suspect]
     Indication: ANKYLOSING SPONDYLITIS
     Route: 042
     Dates: start: 20120709
  5. POLARAMIN [Concomitant]
     Indication: PREMEDICATION
     Route: 065
     Dates: start: 20120717
  6. POLARAMIN [Concomitant]
     Indication: PREMEDICATION
     Route: 065

REACTIONS (6)
  - Infusion related reaction [Recovered/Resolved]
  - Rash [Recovered/Resolved]
  - Respiratory disorder [Recovered/Resolved]
  - Chills [Recovered/Resolved]
  - Body temperature increased [Recovered/Resolved]
  - Exposure during pregnancy [Unknown]
